FAERS Safety Report 18223823 (Version 1)
Quarter: 2020Q3

REPORT INFORMATION
  Report Type: Spontaneous
  Country: FR (occurrence: FR)
  Receive Date: 20200902
  Receipt Date: 20200902
  Transmission Date: 20201103
  Serious: Yes (Other)
  Sender: FDA-Public Use
  Company Number: FR-AVERITAS PHARMA, INC.-2020-105516

PATIENT
  Age: 46 Year
  Sex: Female
  Weight: 80 kg

DRUGS (1)
  1. QUTENZA [Suspect]
     Active Substance: CAPSAICIN
     Indication: NEURALGIA
     Dosage: 1 DOSAGE FORM, ONCE
     Route: 003
     Dates: start: 20200623, end: 20200623

REACTIONS (5)
  - Application site erythema [Recovered/Resolved with Sequelae]
  - Vertigo [Recovered/Resolved with Sequelae]
  - Application site pain [Not Recovered/Not Resolved]
  - Application site burn [Recovered/Resolved with Sequelae]
  - Application site vesicles [Recovered/Resolved with Sequelae]

NARRATIVE: CASE EVENT DATE: 20200623
